FAERS Safety Report 5962509-9 (Version None)
Quarter: 2008Q4

REPORT INFORMATION
  Report Type: 
  Country: None (occurrence: None)
  Receive Date: 20081121
  Receipt Date: 20081113
  Transmission Date: 20090506
  Serious: Yes (Other)
  Sender: FDA-Public Use
  Company Number: BR-PFIZER INC-2008094173

PATIENT
  Sex: Female

DRUGS (1)
  1. CHAMPIX [Suspect]
     Indication: EX-TOBACCO USER
     Route: 048
     Dates: start: 20081009, end: 20081028

REACTIONS (9)
  - BLOOD PRESSURE DECREASED [None]
  - DIZZINESS [None]
  - DYSGEUSIA [None]
  - DYSSTASIA [None]
  - EATING DISORDER [None]
  - FEELING ABNORMAL [None]
  - NAUSEA [None]
  - THIRST [None]
  - VOMITING [None]
